FAERS Safety Report 8490003-2 (Version None)
Quarter: 2012Q2

REPORT INFORMATION
  Report Type: 
  Country: None (occurrence: None)
  Receive Date: 20120626
  Receipt Date: 20120619
  Transmission Date: 20120825
  Serious: Yes (Hospitalization, Other)
  Sender: FDA-Public Use
  Company Number: USA/USA/12/0024741

PATIENT
  Age: 83 Year
  Sex: Female
  Weight: 50.3493 kg

DRUGS (3)
  1. CETIRIZINE HCL [Suspect]
     Indication: RHINORRHOEA
     Dosage: 10 MG, 1 IN 1 D, ORAL
     Route: 048
     Dates: start: 20120101
  2. CETIRIZINE HCL [Suspect]
     Indication: MULTIPLE ALLERGIES
     Dosage: 10 MG, 1 IN 1 D, ORAL
     Route: 048
     Dates: start: 20120101
  3. CRESTOR [Concomitant]

REACTIONS (7)
  - OEDEMA [None]
  - ANAEMIA [None]
  - CARDIAC FLUTTER [None]
  - FATIGUE [None]
  - DYSPNOEA [None]
  - COELIAC DISEASE [None]
  - CONDITION AGGRAVATED [None]
